FAERS Safety Report 6022771-3 (Version None)
Quarter: 2008Q4

REPORT INFORMATION
  Report Type: 
  Country: None (occurrence: None)
  Receive Date: 20081224
  Receipt Date: 20081224
  Transmission Date: 20090506
  Serious: Yes (Disabling)
  Sender: FDA-Public Use
  Company Number: None

PATIENT
  Age: 51 Year
  Sex: Male
  Weight: 78.4723 kg

DRUGS (3)
  1. CLONAZEPAM [Suspect]
     Indication: CONVULSION
     Dosage: 1 MILLIGRAM TID PO
     Route: 048
     Dates: start: 20081206, end: 20081217
  2. CLONAZEPAM [Suspect]
     Indication: TRAUMATIC BRAIN INJURY
     Dosage: 1 MILLIGRAM TID PO
     Route: 048
     Dates: start: 20081206, end: 20081217
  3. FENTANYL TRANSDERMAL SYSTEM [Concomitant]

REACTIONS (10)
  - AGITATION [None]
  - CONFUSIONAL STATE [None]
  - CONVULSION [None]
  - COORDINATION ABNORMAL [None]
  - HEADACHE [None]
  - MEMORY IMPAIRMENT [None]
  - PRODUCT COUNTERFEIT [None]
  - PRODUCT QUALITY ISSUE [None]
  - PRURITUS [None]
  - VERTIGO [None]
